FAERS Safety Report 8141611-X (Version None)
Quarter: 2012Q1

REPORT INFORMATION
  Report Type: 
  Country: None (occurrence: None)
  Receive Date: 20120103
  Receipt Date: 20110929
  Transmission Date: 20120608
  Serious: No
  Sender: FDA-Public Use
  Company Number: AE-2011-001471

PATIENT

DRUGS (3)
  1. PEGASYS [Concomitant]
  2. INCIVEK [Suspect]
     Dosage: ORAL
     Route: 048
  3. RIBAVIRIN [Concomitant]

REACTIONS (2)
  - VOMITING [None]
  - NAUSEA [None]
